FAERS Safety Report 21304346 (Version 1)
Quarter: 2022Q3

REPORT INFORMATION
  Report Type: Spontaneous
  Country: US (occurrence: None)
  Receive Date: 20220907
  Receipt Date: 20220907
  Transmission Date: 20221026
  Serious: No
  Sender: FDA-Public Use
  Company Number: US-ARIS GLOBAL-202107-1279

PATIENT
  Age: 78 Year
  Sex: Male

DRUGS (17)
  1. OXERVATE [Suspect]
     Active Substance: CENEGERMIN-BKBJ
     Indication: Ulcerative keratitis
     Route: 047
     Dates: start: 20210722
  2. FINASTERIDE [Concomitant]
     Active Substance: FINASTERIDE
  3. ZOCOR [Concomitant]
     Active Substance: SIMVASTATIN
  4. VITAMIN B1 [Concomitant]
     Active Substance: THIAMINE HYDROCHLORIDE
  5. VITAMIN D3 [Concomitant]
     Active Substance: CHOLECALCIFEROL
  6. DONEPEZIL HYDROCHLORIDE [Concomitant]
     Active Substance: DONEPEZIL HYDROCHLORIDE
  7. ELIQUIS [Concomitant]
     Active Substance: APIXABAN
  8. SERTRALINE HYDROCHLORIDE [Concomitant]
     Active Substance: SERTRALINE HYDROCHLORIDE
  9. INDAPAMIDE [Concomitant]
     Active Substance: INDAPAMIDE
  10. COLESTIPOL HYDROCHLORIDE [Concomitant]
     Active Substance: COLESTIPOL HYDROCHLORIDE
  11. TRELEGY ELLIPTA [Concomitant]
     Active Substance: FLUTICASONE FUROATE\UMECLIDINIUM BROMIDE\VILANTEROL TRIFENATATE
     Dosage: 100-62.5 BLISTER WITH DEVICE
  12. HUMALOG [Concomitant]
     Active Substance: INSULIN LISPRO
     Dosage: 100/ML CARTRIDGE
  13. LANTUS [Concomitant]
     Active Substance: INSULIN GLARGINE
     Dosage: 100 ML VIAL
  14. GANCICLOVIR SODIUM [Concomitant]
     Active Substance: GANCICLOVIR SODIUM
     Dosage: VIAL
  15. CYCLOPENTOLATE HYDROCHLORIDE [Concomitant]
     Active Substance: CYCLOPENTOLATE HYDROCHLORIDE
  16. OFLOXACIN [Concomitant]
     Active Substance: OFLOXACIN
  17. ARTIFICIAL TEARS [Concomitant]
     Active Substance: GLYCERIN\HYPROMELLOSES\POLYETHYLENE GLYCOL 400

REACTIONS (1)
  - Eye pain [Recovering/Resolving]

NARRATIVE: CASE EVENT DATE: 20210723
